FAERS Safety Report 8277857-X (Version None)
Quarter: 2012Q2

REPORT INFORMATION
  Report Type: 
  Country: None (occurrence: None)
  Receive Date: 20120412
  Receipt Date: 20120404
  Transmission Date: 20120825
  Serious: Yes (Hospitalization)
  Sender: FDA-Public Use
  Company Number: HK-B.I. PHARMACEUTICALS,INC./RIDGEFIELD-2012-BP-06295BP

PATIENT
  Sex: Male

DRUGS (4)
  1. ACETYLSALICYLIC ACID SRT [Suspect]
  2. SAXAGLIPTIN [Concomitant]
     Indication: TYPE 2 DIABETES MELLITUS
     Dates: start: 20110324
  3. METFORMIN HCL [Concomitant]
     Indication: TYPE 2 DIABETES MELLITUS
     Dosage: 1.5 G
  4. PERSANTIN [Suspect]

REACTIONS (6)
  - DIZZINESS [None]
  - DYSPNOEA [None]
  - PALPITATIONS [None]
  - BLOOD PRESSURE DECREASED [None]
  - MALAISE [None]
  - DUODENAL ULCER HAEMORRHAGE [None]
